FAERS Safety Report 6289759-9 (Version None)
Quarter: 2009Q3

REPORT INFORMATION
  Report Type: 
  Country: None (occurrence: None)
  Receive Date: 20090730
  Receipt Date: 20080714
  Transmission Date: 20100115
  Serious: No
  Sender: FDA-Public Use
  Company Number: US-BRISTOL-MYERS SQUIBB COMPANY-14262497

PATIENT
  Age: 67 Year
  Sex: Male
  Weight: 86 kg

DRUGS (3)
  1. COUMADIN [Suspect]
     Indication: ATRIAL FIBRILLATION
     Dosage: 7.5MG/D FOR 5DAYS+10MG/D FOR 2DAYS DOSE DECREASED TO 55MG/WEEK: 7.5MG/D FOR 6 DAYS+10MG/D FOR 1 DAY
  2. WARFARIN SODIUM [Suspect]
  3. NAPROSYN [Concomitant]
     Dosage: 1 DOSAGEFORM = 1-2 TABS

REACTIONS (3)
  - EPISTAXIS [None]
  - FALL [None]
  - INTERNATIONAL NORMALISED RATIO FLUCTUATION [None]
